FAERS Safety Report 9726751 (Version 2)
Quarter: 2014Q1

REPORT INFORMATION
  Report Type: Report from Study
  Country: FR (occurrence: FR)
  Receive Date: 20131203
  Receipt Date: 20140305
  Transmission Date: 20141002
  Serious: Yes (Other)
  Sender: FDA-Public Use
  Company Number: PHHY2013FR139787

PATIENT
  Age: 73 Year
  Sex: Female
  Weight: 62 kg

DRUGS (6)
  1. ACLASTA/ZOLEDRONATE [Suspect]
     Indication: OSTEOPOROSIS
     Dosage: 5 MG SOLUTION FOR INFUSION ONCE
     Route: 042
     Dates: start: 20120425
  2. ACLASTA/ZOLEDRONATE [Suspect]
     Dates: start: 20130425
  3. OROCAL D3 [Concomitant]
     Indication: OSTEOPOROSIS
  4. CALCIUM [Concomitant]
  5. VITAMIN D [Concomitant]
  6. OPTRUMA [Concomitant]
     Dates: start: 2011, end: 201204

REACTIONS (3)
  - Fall [Unknown]
  - Pathological fracture [Recovering/Resolving]
  - Radius fracture [Recovering/Resolving]
